FAERS Safety Report 17767670 (Version 1)
Quarter: 2020Q2

REPORT INFORMATION
  Report Type: Spontaneous
  Country: SE (occurrence: SE)
  Receive Date: 20200511
  Receipt Date: 20200511
  Transmission Date: 20200714
  Serious: Yes (Death)
  Sender: FDA-Public Use
  Company Number: SE-BAYER-2020-073320

PATIENT
  Age: 81 Year
  Sex: Female

DRUGS (5)
  1. CIPROXIN [Suspect]
     Active Substance: CIPROFLOXACIN
     Indication: KIDNEY INFECTION
     Dosage: 2000 MG, QD
     Dates: start: 20200201, end: 20200206
  2. TRAJENTA [Concomitant]
     Active Substance: LINAGLIPTIN
     Dosage: UNK
  3. FURIX [CEFUROXIME] [Concomitant]
     Active Substance: CEFUROXIME
     Dosage: UNK
  4. XARELTO [Suspect]
     Active Substance: RIVAROXABAN
     Indication: CARDIAC FAILURE
     Dosage: 15 MG
     Dates: start: 20150806, end: 20200211
  5. BISOPROLOL [Concomitant]
     Active Substance: BISOPROLOL
     Dosage: UNK

REACTIONS (2)
  - Pharyngeal haemorrhage [Fatal]
  - Flatulence [Fatal]

NARRATIVE: CASE EVENT DATE: 20200125
